FAERS Safety Report 23229026 (Version 1)
Quarter: 2023Q4

REPORT INFORMATION
  Report Type: Spontaneous
  Country: US (occurrence: US)
  Receive Date: 20231126
  Receipt Date: 20231126
  Transmission Date: 20240110
  Serious: Yes (Other)
  Sender: FDA-Public Use
  Company Number: US-BRISTOL-MYERS SQUIBB COMPANY-2023-170082

PATIENT
  Age: 83 Year
  Sex: Male

DRUGS (1)
  1. ENASIDENIB [Suspect]
     Active Substance: ENASIDENIB
     Indication: Primary myelofibrosis

REACTIONS (3)
  - Blood bilirubin increased [Unknown]
  - Pancytopenia [Unknown]
  - Off label use [Unknown]
